FAERS Safety Report 9619906 (Version 1)
Quarter: 2013Q4

REPORT INFORMATION
  Report Type: Spontaneous
  Country: US (occurrence: US)
  Receive Date: 20131014
  Receipt Date: 20131014
  Transmission Date: 20140711
  Serious: Yes (Other)
  Sender: FDA-Public Use
  Company Number: US-BAYER-2013-122704

PATIENT
  Sex: Female

DRUGS (2)
  1. BAYER GENUINE ASPIRIN ORIGINAL STRENGTH [Suspect]
  2. TYLENOL [PARACETAMOL] [Concomitant]

REACTIONS (3)
  - Pharyngeal oedema [Recovered/Resolved]
  - Rash [Recovered/Resolved]
  - Drug hypersensitivity [Not Recovered/Not Resolved]
